FAERS Safety Report 10265932 (Version 1)
Quarter: 2014Q2

REPORT INFORMATION
  Report Type: Spontaneous
  Country: US (occurrence: US)
  Receive Date: 20140627
  Receipt Date: 20140627
  Transmission Date: 20141212
  Serious: Yes (Death)
  Sender: FDA-Public Use
  Company Number: US-PFIZER INC-2014177189

PATIENT
  Age: 19 Year
  Sex: Male
  Weight: 72.56 kg

DRUGS (2)
  1. ZOLOFT [Suspect]
     Indication: ANXIETY
     Dosage: UNK
  2. SERTRALINE HCL [Suspect]
     Indication: ANXIETY
     Dosage: UNK

REACTIONS (1)
  - Completed suicide [Fatal]
